FAERS Safety Report 9343806 (Version 2)
Quarter: 2013Q2

REPORT INFORMATION
  Report Type: Spontaneous
  Country: US (occurrence: US)
  Receive Date: 20130612
  Receipt Date: 20130617
  Transmission Date: 20140414
  Serious: Yes (Hospitalization)
  Sender: FDA-Public Use
  Company Number: US-BAYER-2013-070184

PATIENT
  Age: 87 Year
  Sex: Female
  Weight: 54.42 kg

DRUGS (2)
  1. BAYER WOMEN^S LOW STRENGTH ASPIRIN REGIMEN [Suspect]
     Indication: ISCHAEMIC HEART DISEASE PROPHYLAXIS
     Dosage: 1 DF, QD
     Route: 048
     Dates: start: 20130602
  2. SINEMET [Concomitant]

REACTIONS (3)
  - Haematochezia [Recovered/Resolved]
  - Blood urine present [Recovered/Resolved]
  - Diarrhoea [None]
